FAERS Safety Report 7555083-7 (Version None)
Quarter: 2011Q2

REPORT INFORMATION
  Report Type: 
  Country: None (occurrence: None)
  Receive Date: 20110617
  Receipt Date: 20110606
  Transmission Date: 20111010
  Serious: Yes (Other)
  Sender: FDA-Public Use
  Company Number: GB-BRISTOL-MYERS SQUIBB COMPANY-15839301

PATIENT
  Sex: Male

DRUGS (2)
  1. METFORMIN HCL [Suspect]
  2. GLICLAZIDE [Suspect]

REACTIONS (2)
  - BRONCHIECTASIS [None]
  - PULMONARY FIBROSIS [None]
